FAERS Safety Report 4933435-9 (Version None)
Quarter: 2006Q1

REPORT INFORMATION
  Report Type: 
  Country: None (occurrence: None)
  Receive Date: 20060306
  Receipt Date: 20060222
  Transmission Date: 20060701
  Serious: Yes (Life-Threatening, Hospitalization, Disabling, Other)
  Sender: FDA-Public Use
  Company Number: GB-GLAXOSMITHKLINE-B0413235A

PATIENT
  Age: 62 Year
  Sex: Male

DRUGS (10)
  1. ACYCLOVIR [Suspect]
     Dosage: 400MG FOUR TIMES PER DAY
     Route: 048
     Dates: start: 20060206, end: 20060210
  2. AMLODIPINE [Concomitant]
     Dosage: 10MG PER DAY
     Route: 048
  3. BUMETANIDE [Concomitant]
     Dosage: 5MG PER DAY
     Route: 048
  4. DOXAZOSIN [Concomitant]
     Dosage: 4MG TWICE PER DAY
     Route: 048
  5. ASPIRIN [Concomitant]
     Dosage: 75MG PER DAY
     Route: 048
  6. ATORVASTATIN CALCIUM [Concomitant]
     Dosage: 10MG PER DAY
     Route: 048
  7. LANSOPRAZOLE [Concomitant]
     Dosage: 15MG PER DAY
     Route: 048
  8. GABAPENTIN [Concomitant]
     Dosage: 400MG THREE TIMES PER DAY
     Route: 048
  9. ALFACALCIDOL [Concomitant]
     Dosage: 250NG TWICE PER DAY
     Route: 048
  10. HUMULIN [Concomitant]
     Route: 048

REACTIONS (2)
  - RENAL FAILURE ACUTE [None]
  - TREMOR [None]
